FAERS Safety Report 5913233-X (Version None)
Quarter: 2008Q4

REPORT INFORMATION
  Report Type: 
  Country: None (occurrence: None)
  Receive Date: 20081009
  Receipt Date: 20081006
  Transmission Date: 20090506
  Serious: Yes (Hospitalization)
  Sender: FDA-Public Use
  Company Number: FR-WYE-G02291708

PATIENT
  Sex: Female
  Weight: 27 kg

DRUGS (3)
  1. ADVIL [Suspect]
     Indication: JUVENILE ARTHRITIS
     Route: 048
     Dates: start: 20080601, end: 20080731
  2. ADVIL [Suspect]
     Route: 048
     Dates: start: 20080801, end: 20080831
  3. ADVIL [Suspect]
     Route: 048
     Dates: start: 20080901, end: 20080903

REACTIONS (2)
  - VISUAL ACUITY REDUCED TRANSIENTLY [None]
  - VISUAL IMPAIRMENT [None]
